FAERS Safety Report 17209724 (Version 2)
Quarter: 2020Q1

REPORT INFORMATION
  Report Type: Spontaneous
  Country: US (occurrence: US)
  Receive Date: 20191227
  Receipt Date: 20200108
  Transmission Date: 20200409
  Serious: Yes (Other)
  Sender: FDA-Public Use
  Company Number: US-SA-2019SA353283

PATIENT
  Age: 69 Year
  Sex: Female

DRUGS (3)
  1. HUMALOG [Concomitant]
     Active Substance: INSULIN LISPRO
     Dosage: UNK, UNK
     Route: 065
  2. LANTUS SOLOSTAR [Suspect]
     Active Substance: INSULIN GLARGINE
     Dosage: 50 IU, BID (50 UNITS IN THE MORNING AND 50 UNITS IN THE NIGHT)
     Route: 065
  3. LANTUS SOLOSTAR [Suspect]
     Active Substance: INSULIN GLARGINE
     Dosage: 40 OR 50 UNITS, BID
     Route: 065
     Dates: start: 2005

REACTIONS (6)
  - Glycosylated haemoglobin increased [Unknown]
  - Blood glucose increased [Unknown]
  - Inappropriate schedule of product administration [Unknown]
  - Device operational issue [Unknown]
  - Diabetes mellitus inadequate control [Unknown]
  - Product dose omission [Unknown]
